FAERS Safety Report 24060913 (Version 1)
Quarter: 2024Q3

REPORT INFORMATION
  Report Type: Report from Study
  Country: GB (occurrence: GB)
  Receive Date: 20240708
  Receipt Date: 20240708
  Transmission Date: 20241017
  Serious: Yes (Hospitalization)
  Sender: SANDOZ
  Company Number: GB-SANDOZ-SDZ2024GB063096

PATIENT
  Sex: Female

DRUGS (1)
  1. ETANERCEPT [Suspect]
     Active Substance: ETANERCEPT
     Indication: Rheumatoid arthritis
     Dosage: 50 MG, QW, 50MG/1ML SOLUTION FOR INJECTION PRE-FILLED PENS
     Route: 058

REACTIONS (1)
  - Fall [Unknown]
